FAERS Safety Report 5157454-5 (Version None)
Quarter: 2006Q4

REPORT INFORMATION
  Report Type: 
  Country: None (occurrence: None)
  Receive Date: 20061116
  Receipt Date: 20060417
  Transmission Date: 20070319
  Serious: No
  Sender: FDA-Public Use
  Company Number: IND-AE-06-DEL-001

PATIENT
  Age: 79 Year
  Sex: Male

DRUGS (7)
  1. DELATESTRYL [Suspect]
     Indication: HYPOGONADISM
     Dosage: 50 MG - 1XW - IM
     Route: 030
     Dates: start: 20040101, end: 20050101
  2. COUMADIN [Concomitant]
  3. ATENOLOL [Concomitant]
  4. ZYLOPRIM [Concomitant]
  5. DYAZIDE [Concomitant]
  6. CARDIZEM [Concomitant]
  7. ZOLOFT [Concomitant]

REACTIONS (2)
  - BLOOD TESTOSTERONE DECREASED [None]
  - HOT FLUSH [None]
